FAERS Safety Report 9420118 (Version 3)
Quarter: 2013Q3

REPORT INFORMATION
  Report Type: Report from Study
  Country: NL (occurrence: NL)
  Receive Date: 20130725
  Receipt Date: 20130819
  Transmission Date: 20140515
  Serious: Yes (Hospitalization)
  Sender: FDA-Public Use
  Company Number: NL-GLAXOSMITHKLINE-Z0019834A

PATIENT
  Age: 42 Year
  Sex: Female
  Weight: 66.4 kg

DRUGS (6)
  1. TRAMETINIB [Suspect]
     Indication: MALIGNANT MELANOMA
     Dosage: 2MG PER DAY
     Route: 048
     Dates: start: 20130424
  2. DABRAFENIB [Suspect]
     Indication: MALIGNANT MELANOMA
     Dosage: 150MG TWICE PER DAY
     Route: 048
     Dates: start: 20130424, end: 20130522
  3. DOXYCYCLINE [Concomitant]
     Indication: DERMATITIS ACNEIFORM
     Dosage: 100MG PER DAY
     Route: 048
     Dates: start: 20130513, end: 20130526
  4. ESOMEPRAZOL [Concomitant]
     Indication: PROPHYLAXIS
     Dosage: 20MG SINGLE DOSE
     Route: 048
     Dates: start: 20130523
  5. MOVICOLON [Concomitant]
     Indication: CONSTIPATION
     Dosage: 1 PER DAY
     Route: 048
     Dates: start: 20130527
  6. METRONIDAZOL [Concomitant]
     Indication: DERMATITIS ACNEIFORM
     Dosage: 1U UNKNOWN
     Route: 061
     Dates: start: 20130516

REACTIONS (3)
  - Pyrexia [Recovered/Resolved]
  - Chills [Recovered/Resolved]
  - Nausea [Recovered/Resolved]
